FAERS Safety Report 4266856-0 (Version None)
Quarter: 2004Q1

REPORT INFORMATION
  Report Type: 
  Country: None (occurrence: None)
  Receive Date: 20040108
  Receipt Date: 20040105
  Transmission Date: 20041129
  Serious: Yes (Life-Threatening, Hospitalization, Other)
  Sender: FDA-Public Use
  Company Number: WAES 0401GBR00018

PATIENT
  Age: 74 Year
  Sex: Male
  Weight: 74 kg

DRUGS (2)
  1. CAPTOPRIL [Concomitant]
     Route: 048
     Dates: start: 19950315
  2. PROSCAR [Suspect]
     Indication: BENIGN PROSTATIC HYPERPLASIA
     Route: 048
     Dates: start: 20001204

REACTIONS (1)
  - DEEP VEIN THROMBOSIS [None]
